FAERS Safety Report 6318154-9 (Version None)
Quarter: 2009Q3

REPORT INFORMATION
  Report Type: 
  Country: None (occurrence: None)
  Receive Date: 20090821
  Receipt Date: 20090811
  Transmission Date: 20100115
  Serious: Yes (Hospitalization)
  Sender: FDA-Public Use
  Company Number: A0801469A

PATIENT
  Age: 47 Year
  Sex: Female
  Weight: 86.4 kg

DRUGS (7)
  1. AVANDIA [Suspect]
     Indication: DIABETES MELLITUS
     Dosage: 8MG PER DAY
     Route: 048
     Dates: start: 20000407, end: 20070301
  2. GLIPIZIDE [Concomitant]
  3. LIPITOR [Concomitant]
  4. LOTENSIN [Concomitant]
  5. NPH INSULIN [Concomitant]
  6. GLUCOPHAGE [Concomitant]
     Dates: end: 20020101
  7. TENORMIN [Concomitant]

REACTIONS (2)
  - CORONARY ARTERY DISEASE [None]
  - MYOCARDIAL INFARCTION [None]
